FAERS Safety Report 6089509-5 (Version None)
Quarter: 2009Q1

REPORT INFORMATION
  Report Type: 
  Country: None (occurrence: None)
  Receive Date: 20090219
  Receipt Date: 20090219
  Transmission Date: 20090719
  Serious: Yes (Disabling)
  Sender: FDA-Public Use
  Company Number: None

PATIENT
  Sex: Female
  Weight: 65.7716 kg

DRUGS (1)
  1. ACTONEL [Suspect]
     Indication: OSTEOPENIA
     Dosage: 35 MG 1 X WEEK
     Dates: start: 20050301, end: 20081001

REACTIONS (2)
  - BARRETT'S OESOPHAGUS [None]
  - OESOPHAGEAL ULCER [None]
